FAERS Safety Report 7170367-2 (Version None)
Quarter: 2010Q4

REPORT INFORMATION
  Report Type: 
  Country: None (occurrence: None)
  Receive Date: 20101217
  Receipt Date: 20101208
  Transmission Date: 20110411
  Serious: Yes (Hospitalization)
  Sender: FDA-Public Use
  Company Number: FR-ROCHE-747418

PATIENT
  Sex: Female

DRUGS (7)
  1. HERCEPTIN [Suspect]
     Indication: BREAST CANCER
     Route: 042
     Dates: start: 20100927
  2. TAXOTERE [Suspect]
     Indication: BREAST CANCER
     Route: 042
     Dates: start: 20100927, end: 20101109
  3. CARBOPLATIN [Suspect]
     Indication: BREAST CANCER
     Route: 042
     Dates: start: 20100927, end: 20101109
  4. SOTALOL HCL [Concomitant]
     Route: 048
  5. LEXOMIL [Concomitant]
     Route: 048
  6. SEROPLEX [Concomitant]
     Route: 048
  7. ZOPICLONE [Concomitant]
     Route: 048

REACTIONS (5)
  - COLITIS ISCHAEMIC [None]
  - GASTRITIS [None]
  - NEUTROPENIA [None]
  - PRURITUS [None]
  - RASH ERYTHEMATOUS [None]
